FAERS Safety Report 6346377-1 (Version None)
Quarter: 2009Q3

REPORT INFORMATION
  Report Type: 
  Country: None (occurrence: None)
  Receive Date: 20090909
  Receipt Date: 20090904
  Transmission Date: 20100115
  Serious: Yes (Hospitalization)
  Sender: FDA-Public Use
  Company Number: JP-B.I. PHARMACEUTICALS,INC./RIDGEFIELD-2009-BP-09343NB

PATIENT
  Sex: Female

DRUGS (3)
  1. MICARDIS [Suspect]
     Dosage: 80 MG
     Route: 048
     Dates: start: 20090630, end: 20090729
  2. ANPLAG [Suspect]
     Dosage: 300 MG
     Route: 048
     Dates: start: 20090714, end: 20090729
  3. ADALAT [Suspect]
     Dosage: 20 MG
     Route: 048
     Dates: start: 20090527, end: 20090729

REACTIONS (1)
  - LIVER DISORDER [None]
